FAERS Safety Report 8320614-6 (Version None)
Quarter: 2012Q2

REPORT INFORMATION
  Report Type: 
  Country: None (occurrence: None)
  Receive Date: 20120430
  Receipt Date: 20120420
  Transmission Date: 20120825
  Serious: Yes (Other)
  Sender: FDA-Public Use
  Company Number: US-BAYER-2012-039322

PATIENT
  Age: 14 Year

DRUGS (2)
  1. ALLERGY MEDICATION [Concomitant]
     Indication: HYPERSENSITIVITY
  2. NAPROXEN SODIUM [Suspect]

REACTIONS (1)
  - DRUG DEPENDENCE [None]
